FAERS Safety Report 25659846 (Version 1)
Quarter: 2025Q3

REPORT INFORMATION
  Report Type: Spontaneous
  Country: US (occurrence: None)
  Receive Date: 20250807
  Receipt Date: 20250807
  Transmission Date: 20251020
  Serious: Yes (Hospitalization)
  Sender: FDA-CTU
  Company Number: None

PATIENT
  Age: 61 Year
  Sex: Female

DRUGS (11)
  1. CREST PRO-HEALTH CLINICAL [Suspect]
     Active Substance: CETYLPYRIDINIUM CHLORIDE
     Indication: Gingivitis
     Dosage: OTHER QUANTITY : 4 TEASPOON(S)?FREQUENCY : TWICE A DAY;?
     Route: 048
     Dates: start: 20250601, end: 20250710
  2. CREST PRO-HEALTH CLINICAL [Suspect]
     Active Substance: CETYLPYRIDINIUM CHLORIDE
     Indication: Dental plaque
  3. LEVOTHYROXINE [Concomitant]
     Active Substance: LEVOTHYROXINE
  4. OMEPRAZOLE [Concomitant]
     Active Substance: OMEPRAZOLE
  5. SPIRONOLACTONE [Concomitant]
     Active Substance: SPIRONOLACTONE
  6. VITAMINS [Concomitant]
     Active Substance: VITAMINS
  7. EXCEDRIN [Concomitant]
     Active Substance: ACETAMINOPHEN\ASPIRIN\CAFFEINE
  8. PSEUDOEPHEDRINE [Concomitant]
     Active Substance: PSEUDOEPHEDRINE
  9. ZYRTEC [Concomitant]
     Active Substance: CETIRIZINE HYDROCHLORIDE
  10. Gluosamine/Chondroitin [Concomitant]
  11. TUMS [Concomitant]
     Active Substance: CALCIUM CARBONATE

REACTIONS (1)
  - Hypertension [None]

NARRATIVE: CASE EVENT DATE: 20250707
